FAERS Safety Report 10533902 (Version 3)
Quarter: 2015Q2

REPORT INFORMATION
  Report Type: Spontaneous
  Country: BR (occurrence: BR)
  Receive Date: 20141022
  Receipt Date: 20150417
  Transmission Date: 20150821
  Serious: Yes (Life-Threatening, Hospitalization, Other)
  Sender: FDA-Public Use
  Company Number: BR-BAYER-2014-152279

PATIENT
  Sex: Female

DRUGS (1)
  1. YASMIN [Suspect]
     Active Substance: DROSPIRENONE\ETHINYL ESTRADIOL
     Indication: OVARIAN DISORDER
     Route: 048

REACTIONS (9)
  - Coma [Recovered/Resolved with Sequelae]
  - Fatigue [None]
  - Pulmonary embolism [None]
  - Necrosis [None]
  - Finger amputation [None]
  - Cardiac arrest [Recovered/Resolved with Sequelae]
  - Alopecia [None]
  - Product use issue [None]
  - Gait disturbance [None]
